FAERS Safety Report 8069986-0 (Version None)
Quarter: 2012Q1

REPORT INFORMATION
  Report Type: 
  Country: None (occurrence: None)
  Receive Date: 20120125
  Receipt Date: 20120120
  Transmission Date: 20120608
  Serious: Yes (Hospitalization)
  Sender: FDA-Public Use
  Company Number: JP-B.I. PHARMACEUTICALS,INC./RIDGEFIELD-2011-BP-28587NB

PATIENT
  Age: 75 Year
  Sex: Female

DRUGS (2)
  1. MICARDIS [Suspect]
     Dosage: 20 MG
     Route: 048
     Dates: start: 20060101
  2. STATIN DRUG(DETAILS UNSPECIFIED) [Concomitant]
     Route: 048

REACTIONS (1)
  - INTERSTITIAL LUNG DISEASE [None]
